FAERS Safety Report 23098102 (Version 8)
Quarter: 2024Q2

REPORT INFORMATION
  Report Type: Spontaneous
  Country: US (occurrence: US)
  Receive Date: 20231023
  Receipt Date: 20240510
  Transmission Date: 20240716
  Serious: No
  Sender: FDA-Public Use
  Company Number: US-VERTEX PHARMACEUTICALS-2023-015801

PATIENT

DRUGS (2)
  1. TRIKAFTA [Suspect]
     Active Substance: ELEXACAFTOR\IVACAFTOR\TEZACAFTOR
     Indication: Cystic fibrosis
     Dosage: TWO ORANGE TABS TWICE A WEEK (ON MONDAY AND THURSDAY) FOR 6 MONTHS. NO NIGHT DOSES.
     Route: 048
  2. VORICONAZOLE [Concomitant]
     Active Substance: VORICONAZOLE

REACTIONS (10)
  - Depersonalisation/derealisation disorder [Not Recovered/Not Resolved]
  - Bacterial infection [Unknown]
  - Anxiety [Recovering/Resolving]
  - Panic attack [Unknown]
  - Brain fog [Unknown]
  - Weight decreased [Unknown]
  - Pneumonia bacterial [Not Recovered/Not Resolved]
  - Haemoptysis [Not Recovered/Not Resolved]
  - Gastrointestinal disorder [Not Recovered/Not Resolved]
  - Depression [Unknown]

NARRATIVE: CASE EVENT DATE: 20230501
